FAERS Safety Report 7155824-7 (Version None)
Quarter: 2010Q4

REPORT INFORMATION
  Report Type: 
  Country: None (occurrence: None)
  Receive Date: 20101129
  Receipt Date: 20101116
  Transmission Date: 20110411
  Serious: Yes (Other)
  Sender: FDA-Public Use
  Company Number: GB-ACCORD-006713

PATIENT
  Age: 42 Year
  Sex: Female

DRUGS (2)
  1. TOPIRAMATE [Suspect]
     Indication: MENINGIOMA
  2. ACETAZOLAMIDE [Suspect]
     Indication: MENINGIOMA

REACTIONS (5)
  - HEADACHE [None]
  - MENINGIOMA [None]
  - PAPILLOEDEMA [None]
  - VENOOCCLUSIVE DISEASE [None]
  - VISUAL IMPAIRMENT [None]
